FAERS Safety Report 23992655 (Version 1)
Quarter: 2024Q2

REPORT INFORMATION
  Report Type: Report from Study
  Country: US (occurrence: US)
  Receive Date: 20240620
  Receipt Date: 20240620
  Transmission Date: 20240716
  Serious: Yes (Hospitalization, Other)
  Sender: FDA-Public Use
  Company Number: US-NOVPHSZ-PHEH2019US035985

PATIENT
  Age: 53 Year
  Sex: Female
  Weight: 61.678 kg

DRUGS (18)
  1. OPSUMIT [Suspect]
     Active Substance: MACITENTAN
     Indication: Pulmonary arterial hypertension
     Dosage: UNK
     Route: 065
  2. TREPROSTINIL [Suspect]
     Active Substance: TREPROSTINIL
     Dosage: 66 NG/KG/MIN, CONT
     Route: 042
     Dates: start: 20190730
  3. TREPROSTINIL [Suspect]
     Active Substance: TREPROSTINIL
     Dosage: 75 NG/KG/MIN, CONT
     Route: 042
  4. TREPROSTINIL [Suspect]
     Active Substance: TREPROSTINIL
     Dosage: 75 NG/KG/MIN, CONT
     Route: 042
  5. TREPROSTINIL [Suspect]
     Active Substance: TREPROSTINIL
     Dosage: 75 NG/KG/MIN, CONT
     Route: 042
  6. TREPROSTINIL [Suspect]
     Active Substance: TREPROSTINIL
     Dosage: 75NG/KG/MIN, CONT
     Route: 042
  7. TREPROSTINIL [Suspect]
     Active Substance: TREPROSTINIL
     Dosage: 79 NG/KG/MIN, CONT
     Route: 042
  8. TREPROSTINIL [Suspect]
     Active Substance: TREPROSTINIL
     Dosage: 87NG/KG/MIN, CONT
     Route: 042
     Dates: start: 20190730
  9. TREPROSTINIL [Suspect]
     Active Substance: TREPROSTINIL
     Dosage: 87NG/KG/MIN, CONT
     Route: 042
     Dates: start: 20190730
  10. TREPROSTINIL [Suspect]
     Active Substance: TREPROSTINIL
     Dosage: 87NG/KG/MIN, CONT
     Route: 042
     Dates: start: 20190730
  11. TREPROSTINIL [Suspect]
     Active Substance: TREPROSTINIL
     Dosage: 74 NG/KG/MIN, CONT
     Route: 042
  12. TREPROSTINIL [Suspect]
     Active Substance: TREPROSTINIL
     Indication: Pulmonary arterial hypertension
     Dosage: 75 NG/KG/MIN, CONT
     Route: 042
     Dates: start: 20180525
  13. ADCIRCA [Concomitant]
     Active Substance: TADALAFIL
     Indication: Pulmonary arterial hypertension
     Dosage: UNK
     Route: 065
  14. AMBRISENTAN [Concomitant]
     Active Substance: AMBRISENTAN
     Indication: Product used for unknown indication
     Dosage: UNK
     Route: 065
  15. ELIQUIS [Concomitant]
     Active Substance: APIXABAN
     Indication: Pulmonary arterial hypertension
     Dosage: UNK
     Route: 065
  16. LETAIRIS [Concomitant]
     Active Substance: AMBRISENTAN
     Indication: Pulmonary arterial hypertension
     Dosage: UNK
     Route: 065
  17. REMODULIN [Concomitant]
     Active Substance: TREPROSTINIL
     Indication: Product used for unknown indication
     Dosage: UNK
     Route: 065
  18. TADALAFIL [Concomitant]
     Active Substance: TADALAFIL
     Indication: Pulmonary arterial hypertension
     Dosage: UNK
     Route: 065

REACTIONS (31)
  - Internal haemorrhage [Unknown]
  - Haematochezia [Unknown]
  - Type 1 diabetes mellitus [Not Recovered/Not Resolved]
  - Blood glucose increased [Unknown]
  - Pollakiuria [Unknown]
  - Thirst [Unknown]
  - Fatigue [Not Recovered/Not Resolved]
  - Sarcoidosis [Unknown]
  - Sinusitis [Unknown]
  - Infection [Unknown]
  - Nasal congestion [Unknown]
  - Malaise [Unknown]
  - Feeling abnormal [Unknown]
  - Scratch [Unknown]
  - Cough [Unknown]
  - COVID-19 [Unknown]
  - Chills [Unknown]
  - Arthropod bite [Unknown]
  - Catheter site haemorrhage [Unknown]
  - Catheter site rash [Recovered/Resolved]
  - Infusion site discharge [Unknown]
  - Infusion site haemorrhage [Recovered/Resolved]
  - Headache [Unknown]
  - Hypersensitivity [Unknown]
  - Rhinorrhoea [Unknown]
  - Eye pruritus [Unknown]
  - Device leakage [Recovered/Resolved]
  - Skin haemorrhage [Recovered/Resolved]
  - Dry skin [Recovered/Resolved]
  - Pruritus [Recovered/Resolved]
  - Rash [Not Recovered/Not Resolved]

NARRATIVE: CASE EVENT DATE: 20191025
